FAERS Safety Report 20902000 (Version 1)
Quarter: 2022Q2

REPORT INFORMATION
  Report Type: Spontaneous
  Country: US (occurrence: None)
  Receive Date: 20220601
  Receipt Date: 20220601
  Transmission Date: 20220721
  Serious: No
  Sender: FDA-Public Use
  Company Number: None

PATIENT

DRUGS (4)
  1. INBRIJA [Suspect]
     Active Substance: LEVODOPA
     Indication: Parkinson^s disease
     Dosage: FREQUENCY : AS NEEDED;?
     Route: 048
     Dates: start: 20220208
  2. GOCOVRI [Concomitant]
     Active Substance: AMANTADINE
  3. NAPROSYN TAB [Concomitant]
  4. ONGENTYS CAP [Concomitant]

REACTIONS (2)
  - Dyskinesia [None]
  - Therapy interrupted [None]
